FAERS Safety Report 7833063-1 (Version None)
Quarter: 2011Q4

REPORT INFORMATION
  Report Type: 
  Country: None (occurrence: None)
  Receive Date: 20111024
  Receipt Date: 20111013
  Transmission Date: 20120403
  Serious: Yes (Hospitalization)
  Sender: FDA-Public Use
  Company Number: US-JNJFOC-20111008472

PATIENT
  Sex: Male

DRUGS (5)
  1. RISPERIDONE [Suspect]
     Indication: SCHIZOPHRENIA, PARANOID TYPE
     Route: 048
     Dates: start: 20110301, end: 20110701
  2. VITAMIN TAB [Concomitant]
     Indication: NUTRITIONAL SUPPORT
     Route: 065
  3. FISH OIL [Concomitant]
     Indication: SKIN CANCER
     Route: 048
  4. VITAMINE E [Concomitant]
     Indication: NUTRITIONAL SUPPORT
     Route: 065
  5. UNKNOWN MEDICATION [Concomitant]
     Indication: HEADACHE
     Route: 048

REACTIONS (2)
  - TREATMENT NONCOMPLIANCE [None]
  - HOSPITALISATION [None]
